FAERS Safety Report 20491195 (Version 1)
Quarter: 2022Q1

REPORT INFORMATION
  Report Type: Spontaneous
  Country: US (occurrence: None)
  Receive Date: 20220217
  Receipt Date: 20220217
  Transmission Date: 20220423
  Serious: Yes (Other)
  Sender: FDA-Public Use
  Company Number: None

PATIENT
  Age: 35 Year
  Sex: Female

DRUGS (1)
  1. KYLEENA [Suspect]
     Active Substance: LEVONORGESTREL

REACTIONS (13)
  - Exposure via breast milk [None]
  - Suppressed lactation [None]
  - Poor feeding infant [None]
  - Breast milk odour abnormal [None]
  - Anxiety [None]
  - Anger [None]
  - Milk allergy [None]
  - Irritability [None]
  - Swelling [None]
  - Abdominal distension [None]
  - Constipation [None]
  - Rash [None]
  - Seizure [None]

NARRATIVE: CASE EVENT DATE: 20211225
